FAERS Safety Report 20255472 (Version 4)
Quarter: 2022Q1

REPORT INFORMATION
  Report Type: Report from Study
  Country: US (occurrence: US)
  Receive Date: 20211230
  Receipt Date: 20220206
  Transmission Date: 20220423
  Serious: No
  Sender: FDA-Public Use
  Company Number: US-NOVARTISTESTPH-NVSC2021US298666

PATIENT
  Age: 65 Year
  Sex: Male

DRUGS (8)
  1. ENTRESTO [Suspect]
     Active Substance: SACUBITRIL\VALSARTAN
     Indication: Cardiac failure
     Dosage: 50 MG, BID (24.26 MG)
     Route: 048
     Dates: start: 20211202
  2. ENTRESTO [Suspect]
     Active Substance: SACUBITRIL\VALSARTAN
     Dosage: 100 MG, BID(49.51 MG)
     Route: 048
  3. CARVEDILOL [Suspect]
     Active Substance: CARVEDILOL
     Indication: Cardiac failure
     Dosage: 3 DOSAGE FORM, TID
     Route: 048
     Dates: start: 202112
  4. CARVEDILOL [Suspect]
     Active Substance: CARVEDILOL
     Dosage: 2 DOSAGE FORM, BID
     Route: 048
  5. ISOSORBIDE MONONITRATE [Suspect]
     Active Substance: ISOSORBIDE MONONITRATE
     Indication: Cardiac disorder
     Dosage: UNK
     Route: 048
     Dates: start: 202111, end: 202112
  6. ISOSORBIDE DINITRATE [Concomitant]
     Active Substance: ISOSORBIDE DINITRATE
     Indication: Cardiac disorder
     Dosage: 20 MG, TID
     Route: 065
  7. HYDRALAZINE [Concomitant]
     Active Substance: HYDRALAZINE HYDROCHLORIDE
     Indication: Product used for unknown indication
     Dosage: 10 MG, Q8H
     Route: 048
  8. LASIX [Concomitant]
     Active Substance: FUROSEMIDE
     Indication: Product used for unknown indication
     Dosage: UNK
     Route: 065

REACTIONS (3)
  - Weight decreased [Recovering/Resolving]
  - Weight increased [Recovering/Resolving]
  - Hypotension [Recovering/Resolving]

NARRATIVE: CASE EVENT DATE: 20211201
